FAERS Safety Report 14548192 (Version 1)
Quarter: 2018Q1

REPORT INFORMATION
  Report Type: Spontaneous
  Country: US (occurrence: US)
  Receive Date: 20180219
  Receipt Date: 20180219
  Transmission Date: 20180509
  Serious: No
  Sender: FDA-Public Use
  Company Number: US-ROCHE-1892064

PATIENT
  Sex: Male

DRUGS (1)
  1. NUTROPIN [Suspect]
     Active Substance: SOMATROPIN
     Indication: COR PULMONALE
     Dosage: 10 MG/2ML,
     Route: 058
     Dates: start: 20161111

REACTIONS (1)
  - Diarrhoea [Unknown]
